FAERS Safety Report 11844668 (Version 2)
Quarter: 2015Q4

REPORT INFORMATION
  Report Type: Spontaneous
  Country: CN (occurrence: CN)
  Receive Date: 20151217
  Receipt Date: 20151227
  Transmission Date: 20160305
  Serious: Yes (Life-Threatening)
  Sender: FDA-Public Use
  Company Number: CN-ROCHE-1677390

PATIENT

DRUGS (1)
  1. VALCYTE [Suspect]
     Active Substance: VALGANCICLOVIR HYDROCHLORIDE
     Indication: DEGENERATIVE MITRAL VALVE DISEASE
     Route: 048

REACTIONS (6)
  - White blood cell count decreased [Recovered/Resolved]
  - Renal failure [Recovered/Resolved]
  - Lung infection [Recovered/Resolved]
  - Overdose [Unknown]
  - Off label use [Unknown]
  - Bone marrow failure [Recovered/Resolved]
